FAERS Safety Report 8551661-7 (Version None)
Quarter: 2012Q3

REPORT INFORMATION
  Report Type: 
  Country: None (occurrence: None)
  Receive Date: 20120718
  Receipt Date: 20120703
  Transmission Date: 20120928
  Serious: Yes (Other)
  Sender: FDA-Public Use
  Company Number: 201205078

PATIENT
  Age: 59 Year
  Sex: Male

DRUGS (4)
  1. XIAFLEX [Suspect]
     Indication: DUPUYTREN'S CONTRACTURE
     Dosage: 0.58 MG, 1 IN 1 D, INTRALESIONAL,0.58 MG, 1 IN 1 D, INTRALESIONAL, 0.58 MG, 1 IN 1 D, INTRALESIONAL
     Route: 026
     Dates: start: 20110818, end: 20110818
  2. XIAFLEX [Suspect]
     Indication: DUPUYTREN'S CONTRACTURE
     Dosage: 0.58 MG, 1 IN 1 D, INTRALESIONAL,0.58 MG, 1 IN 1 D, INTRALESIONAL, 0.58 MG, 1 IN 1 D, INTRALESIONAL
     Route: 026
     Dates: start: 20110714, end: 20110714
  3. XIAFLEX [Suspect]
     Indication: DUPUYTREN'S CONTRACTURE
     Dosage: 0.58 MG, 1 IN 1 D, INTRALESIONAL,0.58 MG, 1 IN 1 D, INTRALESIONAL, 0.58 MG, 1 IN 1 D, INTRALESIONAL
     Route: 026
     Dates: start: 20110921, end: 20110921
  4. XIAFLEX [Suspect]
     Indication: DUPUYTREN'S CONTRACTURE
     Dosage: 0.58 MG, 1 IN 1 D, INTRALESIONAL,0.58 MG, 1 IN 1 D, INTRALESIONAL, 0.58 MG, 1 IN 1 D, INTRALESIONAL
     Route: 026
     Dates: start: 20111025, end: 20111025

REACTIONS (5)
  - DISEASE PROGRESSION [None]
  - HEPATITIS C [None]
  - ASTHENIA [None]
  - DISEASE RECURRENCE [None]
  - FATIGUE [None]
